FAERS Safety Report 20436097 (Version 1)
Quarter: 2022Q1

REPORT INFORMATION
  Report Type: Other
  Country: CA (occurrence: CA)
  Receive Date: 20220207
  Receipt Date: 20220207
  Transmission Date: 20220423
  Serious: Yes (Other)
  Sender: FDA-Public Use
  Company Number: CA-APOTEX-2022AP002890

PATIENT
  Age: 62 Year
  Sex: Female

DRUGS (4)
  1. IMATINIB [Suspect]
     Active Substance: IMATINIB
     Indication: Gastrointestinal stromal tumour
     Dosage: 400 MILLIGRAM, QD
     Route: 048
  2. IMATINIB [Suspect]
     Active Substance: IMATINIB
     Dosage: 600 MILLIGRAM
     Route: 048
  3. CALCIUM [Concomitant]
     Active Substance: CALCIUM
     Indication: Product used for unknown indication
     Dosage: UNK
     Route: 065
  4. PANTOPRAZOLE SODIUM [Concomitant]
     Active Substance: PANTOPRAZOLE SODIUM
     Indication: Product used for unknown indication
     Dosage: UNK, QD
     Route: 065

REACTIONS (16)
  - Gastrointestinal stromal tumour [Unknown]
  - Lip dry [Unknown]
  - Malignant neoplasm progression [Unknown]
  - Peripheral swelling [Unknown]
  - Skin atrophy [Unknown]
  - Skin discolouration [Unknown]
  - Swelling face [Unknown]
  - Taste disorder [Unknown]
  - Oedema [Unknown]
  - Nausea [Unknown]
  - Lacrimation increased [Unknown]
  - Dyspepsia [Unknown]
  - Bone pain [Unknown]
  - Pallor [Unknown]
  - Photosensitivity reaction [Unknown]
  - Drug ineffective [Unknown]
